FAERS Safety Report 10086367 (Version 1)
Quarter: 2014Q2

REPORT INFORMATION
  Report Type: Spontaneous
  Country: US (occurrence: GB)
  Receive Date: 20140418
  Receipt Date: 20140418
  Transmission Date: 20141212
  Serious: Yes (Other)
  Sender: FDA-Public Use
  Company Number: GB-FRI-1000066616

PATIENT
  Age: 66 Year
  Sex: Female
  Weight: 82.7 kg

DRUGS (2)
  1. LINACLOTIDE [Suspect]
     Dates: start: 201311
  2. ELTROXIN [Suspect]
     Indication: HYPOTHYROIDISM

REACTIONS (2)
  - Drug interaction [Unknown]
  - Diarrhoea [Recovered/Resolved]
